FAERS Safety Report 21541070 (Version 1)
Quarter: 2022Q4

REPORT INFORMATION
  Report Type: Report from Study
  Country: US (occurrence: US)
  Receive Date: 20221102
  Receipt Date: 20221102
  Transmission Date: 20230113
  Serious: No
  Sender: FDA-Public Use
  Company Number: US-ABBVIE-4149919

PATIENT
  Sex: Female

DRUGS (4)
  1. HUMIRA [Suspect]
     Active Substance: ADALIMUMAB
     Indication: Rheumatoid arthritis
     Dosage: CF, STRENGTH0 40 MG
     Route: 058
  2. COVID VACCINE PFIZER/BIONTECH [Concomitant]
     Indication: COVID-19 immunisation
     Dosage: DOSE TWO, ONE IN ONCE
     Route: 030
     Dates: start: 202104, end: 202104
  3. COVID VACCINE PFIZER/BIONTECH [Concomitant]
     Indication: COVID-19 immunisation
     Dosage: DOSE THIRD,ONE IN ONCE
     Route: 030
     Dates: start: 202204, end: 202204
  4. COVID VACCINE PFIZER/BIONTECH [Concomitant]
     Indication: COVID-19 immunisation
     Dosage: DOSE ONE, ONE IN ONCE
     Route: 030
     Dates: start: 202103, end: 202103

REACTIONS (1)
  - Injection site urticaria [Recovered/Resolved]
